FAERS Safety Report 7958402-2 (Version None)
Quarter: 2011Q4

REPORT INFORMATION
  Report Type: 
  Country: None (occurrence: None)
  Receive Date: 20111205
  Receipt Date: 20111201
  Transmission Date: 20120403
  Serious: Yes (Hospitalization, Other)
  Sender: FDA-Public Use
  Company Number: US-MERCK-1109USA01511

PATIENT
  Age: 79 Year
  Sex: Female
  Weight: 97 kg

DRUGS (7)
  1. FOSAMAX [Suspect]
     Route: 048
     Dates: start: 20021101, end: 20081103
  2. ALENDRONATE SODIUM [Suspect]
     Indication: OSTEOPOROSIS
     Route: 048
     Dates: start: 20081101, end: 20100929
  3. FOSAMAX [Suspect]
     Indication: OSTEOPOROSIS PROPHYLAXIS
     Route: 048
     Dates: start: 19980603, end: 20011031
  4. FOSAMAX [Suspect]
     Route: 048
     Dates: start: 19980101, end: 20100101
  5. FOSAMAX [Suspect]
     Indication: OSTEOPOROSIS
     Route: 048
     Dates: start: 19980603, end: 20011031
  6. FOSAMAX [Suspect]
     Route: 048
     Dates: start: 19980101, end: 20100101
  7. FOSAMAX [Suspect]
     Route: 048
     Dates: start: 20021101, end: 20081103

REACTIONS (25)
  - SPINAL DISORDER [None]
  - SPINAL OSTEOARTHRITIS [None]
  - HYPONATRAEMIA [None]
  - CARDIAC FAILURE CONGESTIVE [None]
  - CHRONIC OBSTRUCTIVE PULMONARY DISEASE [None]
  - FEMORAL NECK FRACTURE [None]
  - NEOPLASM [None]
  - PERIPHERAL VASCULAR DISORDER [None]
  - SPINAL COLUMN STENOSIS [None]
  - ROTATOR CUFF SYNDROME [None]
  - RESTLESS LEGS SYNDROME [None]
  - DEEP VEIN THROMBOSIS [None]
  - GOUTY ARTHRITIS [None]
  - HYPERLIPIDAEMIA [None]
  - SLEEP APNOEA SYNDROME [None]
  - HERNIA [None]
  - SPINAL COMPRESSION FRACTURE [None]
  - AORTIC STENOSIS [None]
  - GOUT [None]
  - CARDIAC MURMUR [None]
  - ASTHMA [None]
  - ANAEMIA [None]
  - HAEMORRHOIDS [None]
  - TENDON DISORDER [None]
  - RENAL FAILURE [None]
